FAERS Safety Report 7117901-6 (Version None)
Quarter: 2010Q4

REPORT INFORMATION
  Report Type: 
  Country: None (occurrence: None)
  Receive Date: 20101118
  Receipt Date: 20101118
  Transmission Date: 20110411
  Serious: No
  Sender: FDA-Public Use
  Company Number: None

PATIENT
  Age: 70 Year
  Sex: Male

DRUGS (9)
  1. REVLIMID [Suspect]
     Indication: MULTIPLE MYELOMA
     Dosage: 15MG DAILY 21D/28D ORALLY
     Route: 048
  2. DEXAMETHASONE [Concomitant]
  3. CELEXA [Concomitant]
  4. SEPTRA DS [Concomitant]
  5. ZOVIRAX [Concomitant]
  6. ALBUTEROL [Concomitant]
  7. METOPROLOL [Concomitant]
  8. ZOCOR [Concomitant]
  9. ZESTRIL [Concomitant]

REACTIONS (1)
  - LEUKOPENIA [None]
